FAERS Safety Report 9838912 (Version 1)
Quarter: 2014Q1

REPORT INFORMATION
  Report Type: Spontaneous
  Country: US (occurrence: CA)
  Receive Date: 20140123
  Receipt Date: 20140123
  Transmission Date: 20141002
  Serious: Yes (Hospitalization)
  Sender: FDA-Public Use
  Company Number: CA-FRI-1000052974

PATIENT
  Age: 60 Year
  Sex: Female

DRUGS (2)
  1. ROFLUMILAST [Suspect]
     Dosage: 500 MCG
     Route: 048
     Dates: start: 201307
  2. PREDNISONE [Concomitant]
     Dates: start: 20140108

REACTIONS (1)
  - H1N1 influenza [Recovering/Resolving]
